FAERS Safety Report 24035788 (Version 1)
Quarter: 2024Q3

REPORT INFORMATION
  Report Type: Other
  Country: CN (occurrence: CN)
  Receive Date: 20240701
  Receipt Date: 20240701
  Transmission Date: 20241017
  Serious: Yes (Hospitalization, Other)
  Sender: COREPHARMA
  Company Number: CN-CorePharma LLC-2158739

PATIENT
  Age: 70 Year
  Sex: Male

DRUGS (4)
  1. TORSEMIDE [Suspect]
     Active Substance: TORSEMIDE
     Indication: Cardiac failure acute
     Route: 042
  2. GLUCOSE (DEXTROSE MONOHYDRATE) [Suspect]
     Active Substance: DEXTROSE MONOHYDRATE
     Route: 048
  3. ALPROSTADIL [Suspect]
     Active Substance: ALPROSTADIL
     Route: 065
  4. FONDAPARINUX SODIUM [Suspect]
     Active Substance: FONDAPARINUX SODIUM
     Route: 058

REACTIONS (1)
  - Kounis syndrome [Recovered/Resolved]
